FAERS Safety Report 15689166 (Version 1)
Quarter: 2018Q4

REPORT INFORMATION
  Report Type: Spontaneous
  Country: US (occurrence: US)
  Receive Date: 20181204
  Receipt Date: 20181204
  Transmission Date: 20190205
  Serious: Yes (Other)
  Sender: FDA-Public Use
  Company Number: None

PATIENT
  Age: 85 Year
  Sex: Male
  Weight: 99.9 kg

DRUGS (16)
  1. ZYTIGA [Suspect]
     Active Substance: ABIRATERONE ACETATE
     Indication: PROSTATE CANCER
     Route: 048
     Dates: start: 20161019
  2. LISINOPRIL. [Concomitant]
     Active Substance: LISINOPRIL
  3. DIGOX [Concomitant]
     Active Substance: DIGOXIN
  4. LUTEIN 20 [Concomitant]
  5. FUROSEMIDE. [Concomitant]
     Active Substance: FUROSEMIDE
  6. MULTIVITAMIN GUMMIES ADULT [Concomitant]
  7. TYLENOL [Concomitant]
     Active Substance: ACETAMINOPHEN
  8. IPRATROPIUM BROMIDE. [Concomitant]
     Active Substance: IPRATROPIUM BROMIDE
  9. ENTRESTO [Concomitant]
     Active Substance: SACUBITRIL\VALSARTAN
  10. SIMVASTAIN [Concomitant]
  11. COUMADIN [Concomitant]
     Active Substance: WARFARIN SODIUM
  12. CARVEDILOL. [Concomitant]
     Active Substance: CARVEDILOL
  13. POTASSIUM CHLORIDE ER [Concomitant]
     Active Substance: POTASSIUM CHLORIDE
  14. PROTONIX [Concomitant]
     Active Substance: PANTOPRAZOLE SODIUM
  15. PREDNISONE. [Concomitant]
     Active Substance: PREDNISONE
  16. OCUVITE EYE + MULTI [Concomitant]

REACTIONS (2)
  - Disease progression [None]
  - Type 2 diabetes mellitus [None]

NARRATIVE: CASE EVENT DATE: 20181204
